FAERS Safety Report 5688781-0 (Version None)
Quarter: 2008Q1

REPORT INFORMATION
  Report Type: 
  Country: None (occurrence: None)
  Receive Date: 20080331
  Receipt Date: 20080325
  Transmission Date: 20080703
  Serious: Yes (Other)
  Sender: FDA-Public Use
  Company Number: ES-ROCHE-554947

PATIENT
  Age: 54 Year
  Sex: Female

DRUGS (1)
  1. XENICAL [Suspect]
     Indication: OVERWEIGHT
     Dosage: FORM HARD CAPSULE
     Route: 048
     Dates: start: 20070501, end: 20070716

REACTIONS (2)
  - DIVERTICULITIS [None]
  - GASTROINTESTINAL DISORDER [None]
